FAERS Safety Report 8342161-8 (Version None)
Quarter: 2012Q2

REPORT INFORMATION
  Report Type: 
  Country: None (occurrence: None)
  Receive Date: 20120507
  Receipt Date: 20120420
  Transmission Date: 20120825
  Serious: Yes (Other)
  Sender: FDA-Public Use
  Company Number: CHPA2012US009800

PATIENT
  Sex: Female

DRUGS (6)
  1. EXCEDRIN EXTRA STRENGTH TABLETS [Suspect]
     Dosage: UNK DF, UNK
     Route: 048
  2. ASPIRIN [Concomitant]
  3. ASPIRIN [Concomitant]
  4. EXCEDRIN (MIGRAINE) [Suspect]
     Dosage: UNK DF, UNK
     Route: 048
  5. DRUG THERAPY NOS [Concomitant]
  6. EXCEDRIN PM TABLETS [Suspect]
     Dosage: UNK DF, UNK
     Route: 048

REACTIONS (2)
  - DRUG DEPENDENCE [None]
  - EXPIRED DRUG ADMINISTERED [None]
